FAERS Safety Report 7227826-3 (Version None)
Quarter: 2011Q1

REPORT INFORMATION
  Report Type: 
  Country: None (occurrence: None)
  Receive Date: 20110111
  Receipt Date: 20110111
  Transmission Date: 20110831
  Serious: Yes (Other)
  Sender: FDA-Public Use
  Company Number: None

PATIENT
  Age: 46 Year
  Sex: Female
  Weight: 81.6475 kg

DRUGS (2)
  1. VIVELLE-DOT [Suspect]
     Dosage: 0.25 Q3-4DAYS TOP
     Route: 061
     Dates: start: 20101224, end: 20101230
  2. VIVELLE-DOT [Suspect]
     Indication: OOPHORECTOMY
     Dosage: 0.1 Q3-4DAYS TOP
     Route: 061
     Dates: start: 20101219, end: 20101224

REACTIONS (3)
  - ASTHMA [None]
  - HEADACHE [None]
  - CONDITION AGGRAVATED [None]
